FAERS Safety Report 8064426-X (Version None)
Quarter: 2012Q1

REPORT INFORMATION
  Report Type: 
  Country: None (occurrence: None)
  Receive Date: 20120123
  Receipt Date: 20120117
  Transmission Date: 20120608
  Serious: Yes (Hospitalization, Other)
  Sender: FDA-Public Use
  Company Number: CHPA2012FR001597

PATIENT
  Sex: Male

DRUGS (9)
  1. MORPHINE SULFATE [Suspect]
     Dosage: 10 MG, UNK
     Route: 048
     Dates: end: 20111223
  2. AUGMENTIN '125' [Concomitant]
     Indication: LUNG DISORDER
     Dosage: UNK, UNK
     Dates: start: 20111219, end: 20111226
  3. POLYETHYLENE GLYCOL [Concomitant]
     Dosage: UNK, UNK
  4. ACETAMINOPHEN [Suspect]
     Indication: PAIN
     Dosage: UNK, UNK
     Route: 048
     Dates: end: 20111223
  5. DURAGESIC-100 [Suspect]
     Dosage: 0.5 DF, QD
     Route: 062
  6. LEVOTHYROXINE SODIUM [Concomitant]
     Dosage: UNK, UNK
  7. SCOPOLAMINE [Suspect]
     Dosage: 1 DF, Q72H
     Route: 062
  8. ESOMEPRAZOLE [Concomitant]
     Dosage: 40 MG, UNK
  9. ESCITALOPRAM [Concomitant]
     Dosage: 10 MG, UNK

REACTIONS (13)
  - LACK OF SPONTANEOUS SPEECH [None]
  - COUGH [None]
  - C-REACTIVE PROTEIN INCREASED [None]
  - BLOOD CREATININE DECREASED [None]
  - DISTURBANCE IN ATTENTION [None]
  - BLOOD PRESSURE INCREASED [None]
  - CONSTIPATION [None]
  - RENAL NEOPLASM [None]
  - DIARRHOEA [None]
  - OLIGURIA [None]
  - FAECALOMA [None]
  - COMA SCALE ABNORMAL [None]
  - HYPONATRAEMIA [None]
